FAERS Safety Report 5817716-2 (Version None)
Quarter: 2008Q3

REPORT INFORMATION
  Report Type: 
  Country: None (occurrence: None)
  Receive Date: 20080722
  Receipt Date: 20080714
  Transmission Date: 20090109
  Serious: Yes (Hospitalization)
  Sender: FDA-Public Use
  Company Number: PHEH2008US06269

PATIENT
  Age: 86 Year
  Sex: Male

DRUGS (2)
  1. EXELON [Suspect]
     Indication: DEMENTIA
     Dosage: 4.6 MG, QD
     Route: 062
  2. EXELON [Suspect]
     Dosage: THREE 4.6 MG PATCHES
     Dates: end: 20080714

REACTIONS (5)
  - DRUG ADMINISTRATION ERROR [None]
  - LETHARGY [None]
  - OVERDOSE [None]
  - OXYGEN SATURATION DECREASED [None]
  - TACHYCARDIA [None]
